FAERS Safety Report 5511458-9 (Version None)
Quarter: 2007Q4

REPORT INFORMATION
  Report Type: 
  Country: None (occurrence: None)
  Receive Date: 20071107
  Receipt Date: 20071026
  Transmission Date: 20080405
  Serious: Yes (Other)
  Sender: FDA-Public Use
  Company Number: 17714

PATIENT
  Age: 57 Year
  Sex: Female

DRUGS (4)
  1. VINCRISTINE [Suspect]
     Indication: MULTIPLE MYELOMA
  2. ADRIAMYCIN PFS [Suspect]
     Indication: MULTIPLE MYELOMA
  3. DEXAMETHASONE [Suspect]
     Indication: MULTIPLE MYELOMA
  4. MELPHALAN [Suspect]
     Indication: MULTIPLE MYELOMA
     Dosage: 200 MG/M2

REACTIONS (9)
  - CEREBRAL HAEMORRHAGE [None]
  - COAGULOPATHY [None]
  - CONDITION AGGRAVATED [None]
  - GAUCHER'S DISEASE [None]
  - HAEMODIALYSIS [None]
  - PNEUMONIA [None]
  - RENAL IMPAIRMENT [None]
  - STEM CELL TRANSPLANT [None]
  - THROMBOCYTOPENIA [None]
